FAERS Safety Report 6410472-9 (Version None)
Quarter: 2009Q4

REPORT INFORMATION
  Report Type: 
  Country: None (occurrence: None)
  Receive Date: 20091020
  Receipt Date: 20091020
  Transmission Date: 20100525
  Serious: Yes (Other)
  Sender: FDA-Public Use
  Company Number: None

PATIENT
  Age: 19 Year
  Sex: Female
  Weight: 122.4712 kg

DRUGS (2)
  1. YASMIN - OCELLA - DROSPIRENONE + ETHYNIL ESTRADIOL  BAYER [Suspect]
     Indication: CONTRACEPTION
     Dosage: 1 PILL ONCE PER DAY PO
     Route: 048
     Dates: start: 20051004, end: 20070613
  2. YASMIN - OCELLA - DROSPIRENONE + ETHYNIL ESTRADIOL  BAYER [Suspect]
     Indication: CONTRACEPTION
     Dosage: 1 PILL ONCE PER DAY PO
     Route: 048
     Dates: start: 20090901, end: 20091016

REACTIONS (15)
  - AGGRESSION [None]
  - ANGER [None]
  - ANXIETY [None]
  - CRYING [None]
  - DRUG EXPOSURE BEFORE PREGNANCY [None]
  - FEELING ABNORMAL [None]
  - HOMICIDAL IDEATION [None]
  - METRORRHAGIA [None]
  - POSTPARTUM DEPRESSION [None]
  - PREGNANCY [None]
  - SCREAMING [None]
  - SOCIAL AVOIDANT BEHAVIOUR [None]
  - SUICIDAL IDEATION [None]
  - THINKING ABNORMAL [None]
  - TREMOR [None]
